FAERS Safety Report 9345573 (Version 3)
Quarter: 2013Q3

REPORT INFORMATION
  Report Type: Spontaneous
  Country: US (occurrence: US)
  Receive Date: 20130613
  Receipt Date: 20130816
  Transmission Date: 20140515
  Serious: Yes (Other)
  Sender: FDA-Public Use
  Company Number: US-BAYER-2013-070600

PATIENT
  Age: 39 Year
  Sex: Female
  Weight: 87.98 kg

DRUGS (3)
  1. MIRENA [Suspect]
     Indication: CONTRACEPTION
     Dosage: 20 MCG/24HR, CONT
     Route: 015
     Dates: start: 20120607
  2. ONDANSETRON [Concomitant]
     Dosage: 4 MG, UNK
     Route: 048
  3. ZOFRAN [Concomitant]
     Dosage: 4 MG, PRN
     Route: 048

REACTIONS (15)
  - Pregnancy with contraceptive device [None]
  - Nausea [None]
  - Headache [None]
  - Breast pain [None]
  - Fatigue [None]
  - Embedded device [None]
  - Device dislocation [None]
  - Drug ineffective [None]
  - Device difficult to use [None]
  - Post procedural discomfort [None]
  - Procedural pain [None]
  - Device dislocation [None]
  - Abdominal pain [None]
  - Haemorrhage in pregnancy [Recovered/Resolved]
  - Malaise [None]
